FAERS Safety Report 13560050 (Version 2)
Quarter: 2017Q2

REPORT INFORMATION
  Report Type: Spontaneous
  Country: JP (occurrence: JP)
  Receive Date: 20170518
  Receipt Date: 20170615
  Transmission Date: 20170830
  Serious: Yes (Hospitalization)
  Sender: FDA-Public Use
  Company Number: JP-ELI_LILLY_AND_COMPANY-JP201702003980

PATIENT
  Age: 69 Year
  Sex: Male
  Weight: 59 kg

DRUGS (9)
  1. CELECOX [Concomitant]
     Active Substance: CELECOXIB
     Route: 048
  2. TRAMAL [Concomitant]
     Active Substance: TRAMADOL
     Dosage: 25 MG, BID
     Route: 048
  3. DOCETAXEL. [Suspect]
     Active Substance: DOCETAXEL
     Indication: LUNG ADENOCARCINOMA RECURRENT
     Dosage: 99 MG, OTHER
     Route: 042
     Dates: start: 20160922, end: 20161013
  4. LYRICA [Concomitant]
     Active Substance: PREGABALIN
     Dosage: 75 MG, QID
     Route: 048
  5. CYMBALTA [Concomitant]
     Active Substance: DULOXETINE HYDROCHLORIDE
     Dosage: 20 MG, BID
  6. FEXOFENADINE [Concomitant]
     Active Substance: FEXOFENADINE\FEXOFENADINE HYDROCHLORIDE
     Dosage: 60 MG, BID
     Route: 048
  7. GOSHAJINKIGAN [Concomitant]
     Active Substance: HERBALS
     Dosage: 2.5 G, TID
     Route: 048
  8. REBAMIPIDE [Concomitant]
     Active Substance: REBAMIPIDE
     Dosage: 100 MG, UNK
     Route: 048
  9. CYRAMZA [Suspect]
     Active Substance: RAMUCIRUMAB
     Indication: LUNG ADENOCARCINOMA RECURRENT
     Dosage: 630 MG, OTHER
     Route: 042
     Dates: start: 20160922, end: 20161013

REACTIONS (2)
  - Lung disorder [Recovering/Resolving]
  - Febrile neutropenia [Recovered/Resolved]

NARRATIVE: CASE EVENT DATE: 20161020
